FAERS Safety Report 9781683 (Version 2)
Quarter: 2014Q1

REPORT INFORMATION
  Report Type: Spontaneous
  Country: DE (occurrence: DE)
  Receive Date: 20131224
  Receipt Date: 20140110
  Transmission Date: 20141002
  Serious: Yes (Other)
  Sender: FDA-Public Use
  Company Number: DE-GILEAD-2013-0090501

PATIENT
  Age: 36 Year
  Sex: Female
  Weight: 52 kg

DRUGS (10)
  1. CAYSTON [Suspect]
     Indication: PRODUCT USED FOR UNKNOWN INDICATION
     Dosage: UNK
     Route: 042
  2. AZITHROMYCIN [Concomitant]
     Dosage: 3XWK
  3. VITAMIN D NOS [Concomitant]
  4. VITAMIN E                          /00110501/ [Concomitant]
  5. CALCIUM [Concomitant]
  6. UDC [Concomitant]
  7. MEROPENEM [Concomitant]
  8. CIPROFLOXACIN [Concomitant]
  9. TOBRAMYCIN [Concomitant]
  10. COLISTIN [Concomitant]

REACTIONS (4)
  - Drug ineffective [Recovered/Resolved]
  - Pathogen resistance [Not Recovered/Not Resolved]
  - Therapy change [Unknown]
  - Off label use [Unknown]
